FAERS Safety Report 16098252 (Version 1)
Quarter: 2019Q1

REPORT INFORMATION
  Report Type: Spontaneous
  Country: AR (occurrence: AR)
  Receive Date: 20190321
  Receipt Date: 20190321
  Transmission Date: 20190418
  Serious: Yes (Other)
  Sender: FDA-Public Use
  Company Number: PHHY2019AR006140

PATIENT
  Age: 43 Year
  Sex: Female

DRUGS (2)
  1. LECTRUM [Suspect]
     Active Substance: LEUPROLIDE ACETATE
     Indication: ENDOMETRIOSIS
     Dosage: 3.75 MG, QMO
     Route: 065
     Dates: start: 20181116
  2. LECTRUM [Suspect]
     Active Substance: LEUPROLIDE ACETATE
     Dosage: 3.75 MG, QMO
     Route: 065
     Dates: start: 20181217, end: 20181217

REACTIONS (4)
  - Anger [Unknown]
  - Memory impairment [Unknown]
  - Drug ineffective [Not Recovered/Not Resolved]
  - Menstruation irregular [Recovering/Resolving]

NARRATIVE: CASE EVENT DATE: 201812
